FAERS Safety Report 17570804 (Version 2)
Quarter: 2020Q2

REPORT INFORMATION
  Report Type: Spontaneous
  Country: FR (occurrence: FR)
  Receive Date: 20200323
  Receipt Date: 20200511
  Transmission Date: 20200713
  Serious: Yes (Other)
  Sender: FDA-Public Use
  Company Number: NVSC2020FR080444

PATIENT
  Age: 56 Year
  Sex: Female

DRUGS (7)
  1. SERESTA [Concomitant]
     Active Substance: OXAZEPAM
     Indication: CYCLOTHYMIC DISORDER
     Dosage: 1 DF
     Route: 065
  2. ANAFRANIL [Suspect]
     Active Substance: CLOMIPRAMINE HYDROCHLORIDE
     Indication: CYCLOTHYMIC DISORDER
     Dosage: 2 DF, QD( (IN THE EVENING))
     Route: 065
  3. TAHOR [Concomitant]
     Active Substance: ATORVASTATIN CALCIUM
     Indication: PRODUCT USED FOR UNKNOWN INDICATION
     Route: 065
  4. PRETERAX [Concomitant]
     Active Substance: INDAPAMIDE\PERINDOPRIL
     Indication: HYPERTENSION
     Route: 065
  5. ISOPTIN [Concomitant]
     Active Substance: VERAPAMIL HYDROCHLORIDE
     Indication: ARRHYTHMIA
     Dosage: UNK
     Route: 065
  6. DEPAMIDE [Concomitant]
     Active Substance: VALPROMIDE
     Indication: CYCLOTHYMIC DISORDER
     Dosage: 3 DF, QD
     Route: 065
  7. PLAVIX [Concomitant]
     Active Substance: CLOPIDOGREL BISULFATE
     Indication: PRODUCT USED FOR UNKNOWN INDICATION
     Route: 065

REACTIONS (3)
  - Cardiac disorder [Recovering/Resolving]
  - Cardiotoxicity [Recovering/Resolving]
  - Off label use [Recovering/Resolving]
